FAERS Safety Report 4806708-8 (Version None)
Quarter: 2005Q4

REPORT INFORMATION
  Report Type: 
  Country: None (occurrence: None)
  Receive Date: 20051019
  Receipt Date: 20050929
  Transmission Date: 20060501
  Serious: Yes (Hospitalization)
  Sender: FDA-Public Use
  Company Number: JP_050506485

PATIENT
  Age: 72 Year
  Sex: Female
  Weight: 46 kg

DRUGS (6)
  1. EVISTA [Suspect]
     Indication: OSTEOPOROSIS
     Dosage: 60 MG DAY
     Dates: start: 20040915, end: 20050115
  2. ALFAROL (ALFACALCIDOL) [Concomitant]
  3. GLYCYRON [Concomitant]
  4. CEREKINON (TRIMEBUTINE MALEATE) [Concomitant]
  5. URSODIOL [Concomitant]
  6. ALDACTONE [Concomitant]

REACTIONS (7)
  - ATRIAL FIBRILLATION [None]
  - CEREBRAL ARTERY EMBOLISM [None]
  - CONSTIPATION [None]
  - DEPRESSED LEVEL OF CONSCIOUSNESS [None]
  - HEMIPARESIS [None]
  - HEMIPLEGIA [None]
  - INTRACARDIAC THROMBUS [None]
